FAERS Safety Report 18152363 (Version 1)
Quarter: 2020Q3

REPORT INFORMATION
  Report Type: Spontaneous
  Country: FR (occurrence: FR)
  Receive Date: 20200814
  Receipt Date: 20200814
  Transmission Date: 20201103
  Serious: Yes (Other)
  Sender: FDA-Public Use
  Company Number: FR-MYLANLABS-2020M1071830

PATIENT
  Age: 50 Year
  Sex: Female

DRUGS (1)
  1. DESLORATADINE. [Suspect]
     Active Substance: DESLORATADINE
     Indication: ANAPHYLACTIC SHOCK
     Dosage: 5 MILLIGRAM
     Route: 048

REACTIONS (1)
  - Drug ineffective [Unknown]
